FAERS Safety Report 11637627 (Version 3)
Quarter: 2015Q4

REPORT INFORMATION
  Report Type: Report from Study
  Country: DE (occurrence: DE)
  Receive Date: 20151016
  Receipt Date: 20151208
  Transmission Date: 20160304
  Serious: Yes (Disabling)
  Sender: FDA-Public Use
  Company Number: DE-AMGEN-DEUCT2015106746

PATIENT
  Age: 17 Year
  Sex: Female

DRUGS (3)
  1. COTRIM [Concomitant]
     Active Substance: SULFAMETHOXAZOLE\TRIMETHOPRIM
  2. BLINATUMOMAB [Suspect]
     Active Substance: BLINATUMOMAB
     Indication: PRODUCT USED FOR UNKNOWN INDICATION
     Dosage: 15 MUG/M2, QD
     Route: 042
     Dates: start: 20150826, end: 20151007
  3. MAGNESIUM VERLA                    /00648601/ [Concomitant]
     Active Substance: MAGNESIUM

REACTIONS (3)
  - Hemiparesis [Recovered/Resolved]
  - Speech disorder [Recovered/Resolved]
  - Neurotoxicity [Recovered/Resolved]

NARRATIVE: CASE EVENT DATE: 20151008
